FAERS Safety Report 5041012-7 (Version None)
Quarter: 2006Q3

REPORT INFORMATION
  Report Type: 
  Country: None (occurrence: None)
  Receive Date: 20060703
  Receipt Date: 20060224
  Transmission Date: 20061208
  Serious: No
  Sender: FDA-Public Use
  Company Number: US-GLAXOSMITHKLINE-A0595592A

PATIENT
  Age: 56 Year
  Sex: Male

DRUGS (1)
  1. PARNATE [Suspect]
     Indication: DEPRESSION
     Route: 048

REACTIONS (5)
  - DRUG INEFFECTIVE [None]
  - DRY MOUTH [None]
  - PRESCRIBED OVERDOSE [None]
  - SOMNOLENCE [None]
  - TACHYCARDIA [None]
